FAERS Safety Report 20461059 (Version 1)
Quarter: 2022Q1

REPORT INFORMATION
  Report Type: Spontaneous
  Country: US (occurrence: US)
  Receive Date: 20220211
  Receipt Date: 20220211
  Transmission Date: 20220423
  Serious: No
  Sender: FDA-Public Use
  Company Number: US-PERRIGO-21US028841

PATIENT
  Age: 77 Year
  Sex: Male
  Weight: 68.027 kg

DRUGS (3)
  1. LOPERAMIDE HYDROCHLORIDE [Suspect]
     Active Substance: LOPERAMIDE HYDROCHLORIDE
     Indication: Prophylaxis against diarrhoea
     Dosage: 4 TO 6 MG, DAILY, PRN
     Route: 048
     Dates: end: 20210925
  2. LOPERAMIDE HYDROCHLORIDE [Suspect]
     Active Substance: LOPERAMIDE HYDROCHLORIDE
     Indication: Diarrhoea
  3. DIAZEPAM [Concomitant]
     Active Substance: DIAZEPAM
     Indication: Nervous system disorder
     Dosage: UNK
     Route: 065

REACTIONS (2)
  - Urine abnormality [Not Recovered/Not Resolved]
  - Off label use [Recovered/Resolved]

NARRATIVE: CASE EVENT DATE: 20210921
